APPROVED DRUG PRODUCT: ADAPALENE AND BENZOYL PEROXIDE
Active Ingredient: ADAPALENE; BENZOYL PEROXIDE
Strength: 0.1%;2.5%
Dosage Form/Route: GEL;TOPICAL
Application: A206959 | Product #001 | TE Code: AB
Applicant: SUN PHARMA CANADA INC
Approved: Jan 24, 2018 | RLD: No | RS: No | Type: RX